FAERS Safety Report 25638108 (Version 1)
Quarter: 2025Q3

REPORT INFORMATION
  Report Type: Other
  Country: AU (occurrence: AU)
  Receive Date: 20250804
  Receipt Date: 20250804
  Transmission Date: 20251020
  Serious: Yes (Hospitalization)
  Sender: OMNIVIUM PHARMACEUTICALS LLC
  Company Number: AU-Omnivium Pharmaceuticals LLC-2181786

PATIENT
  Age: 4 Decade
  Sex: Female

DRUGS (2)
  1. GLYCOPYRROLATE [Suspect]
     Active Substance: GLYCOPYRROLATE
     Indication: Sinus bradycardia
  2. METARAMINOL [Concomitant]
     Active Substance: METARAMINOL

REACTIONS (2)
  - Stress cardiomyopathy [Recovered/Resolved]
  - Maternal exposure during delivery [Unknown]
